FAERS Safety Report 23518964 (Version 3)
Quarter: 2024Q1

REPORT INFORMATION
  Report Type: Spontaneous
  Country: CN (occurrence: CN)
  Receive Date: 20240213
  Receipt Date: 20240301
  Transmission Date: 20240409
  Serious: Yes (Death, Life-Threatening, Other)
  Sender: FDA-Public Use
  Company Number: CN-SA-SAC20240212001222

PATIENT
  Age: 57 Year
  Sex: Female
  Weight: 64 kg

DRUGS (38)
  1. THYMOGLOBULIN [Suspect]
     Active Substance: LAPINE T-LYMPHOCYTE IMMUNE GLOBULIN
     Indication: Acute myeloid leukaemia
     Dosage: 172.5 MG, QD
     Route: 042
     Dates: start: 20200710, end: 20200710
  2. THYMOGLOBULIN [Suspect]
     Active Substance: LAPINE T-LYMPHOCYTE IMMUNE GLOBULIN
     Dosage: 2.5 MG, QD
     Route: 042
     Dates: start: 20200710, end: 20200710
  3. THYMOGLOBULIN [Suspect]
     Active Substance: LAPINE T-LYMPHOCYTE IMMUNE GLOBULIN
     Dosage: 150 MG, QD
     Route: 042
     Dates: start: 20200711, end: 20200712
  4. CYCLOPHOSPHAMIDE [Suspect]
     Active Substance: CYCLOPHOSPHAMIDE
     Indication: Acute myeloid leukaemia
     Route: 042
     Dates: start: 20200709, end: 20200710
  5. VORICONAZOLE [Concomitant]
     Active Substance: VORICONAZOLE
     Indication: Pneumonia
     Dosage: 200 MG, BID
     Route: 048
     Dates: start: 20200624, end: 20200710
  6. VORICONAZOLE [Concomitant]
     Active Substance: VORICONAZOLE
     Indication: Pneumonia
     Dosage: 0.2 G, BID
     Route: 041
     Dates: start: 20200710, end: 20200715
  7. MYCOPHENOLATE MOFETIL [Concomitant]
     Active Substance: MYCOPHENOLATE MOFETIL
     Indication: Immunosuppression
     Dosage: 0.5 G, BID
     Route: 048
     Dates: start: 20200709, end: 20200715
  8. GLYCERIN\MEDIUM-CHAIN TRIGLYCERIDES\PHOSPHOLIPID\SOYBEAN OIL [Concomitant]
     Active Substance: GLYCERIN\MEDIUM-CHAIN TRIGLYCERIDES\PHOSPHOLIPID\SOYBEAN OIL
     Indication: Nutritional supplementation
     Dosage: 250 ML, QD
     Route: 041
     Dates: start: 20200711, end: 20200713
  9. FUROSEMIDE [Concomitant]
     Active Substance: FUROSEMIDE
     Indication: Polyuria
     Dosage: 20 MG, QD
     Route: 030
     Dates: start: 20200704, end: 20200711
  10. LEVOFLOXACIN [Concomitant]
     Active Substance: LEVOFLOXACIN
     Indication: Pneumonia
     Dosage: 0.5 G, QD
     Route: 048
     Dates: start: 20200702, end: 20200710
  11. SODIUM CHLORIDE [Concomitant]
     Active Substance: SODIUM CHLORIDE
     Indication: Vehicle solution use
     Dosage: 10 ML, BID
     Route: 041
     Dates: start: 20200703, end: 20200705
  12. SODIUM CHLORIDE [Concomitant]
     Active Substance: SODIUM CHLORIDE
     Dosage: 250 ML, BID
     Route: 041
     Dates: start: 20200703, end: 20200713
  13. SODIUM CHLORIDE [Concomitant]
     Active Substance: SODIUM CHLORIDE
     Dosage: 500 ML, QD
     Route: 041
     Dates: start: 20200704, end: 20200705
  14. SODIUM CHLORIDE [Concomitant]
     Active Substance: SODIUM CHLORIDE
     Dosage: 100 ML, BID
     Route: 041
     Dates: start: 20200708, end: 20200715
  15. SODIUM CHLORIDE [Concomitant]
     Active Substance: SODIUM CHLORIDE
     Dosage: 250 ML, QD
     Route: 041
     Dates: start: 20200709, end: 20200712
  16. SODIUM CHLORIDE [Concomitant]
     Active Substance: SODIUM CHLORIDE
     Dosage: 100 ML, BID
     Route: 041
     Dates: start: 20200710, end: 20200715
  17. SODIUM CHLORIDE [Concomitant]
     Active Substance: SODIUM CHLORIDE
     Dosage: 250 ML, QD
     Route: 041
     Dates: start: 20200710, end: 20200710
  18. SODIUM CHLORIDE [Concomitant]
     Active Substance: SODIUM CHLORIDE
     Dosage: 500 ML, QD
     Route: 041
     Dates: start: 20200710, end: 20200710
  19. SODIUM CHLORIDE [Concomitant]
     Active Substance: SODIUM CHLORIDE
     Dosage: 500 ML, QD
     Route: 041
     Dates: start: 20200711, end: 20200712
  20. SODIUM CHLORIDE [Concomitant]
     Active Substance: SODIUM CHLORIDE
     Dosage: 100 ML, TID
     Route: 041
     Dates: start: 20200714, end: 20200715
  21. SODIUM CHLORIDE [Concomitant]
     Active Substance: SODIUM CHLORIDE
     Dosage: 10 ML, TID
     Route: 041
     Dates: start: 20200715, end: 20200715
  22. SODIUM CHLORIDE [Concomitant]
     Active Substance: SODIUM CHLORIDE
     Dosage: 30 ML, QD
     Route: 041
     Dates: start: 20200715, end: 20200715
  23. POTASSIUM CHLORIDE [Concomitant]
     Active Substance: POTASSIUM CHLORIDE
     Indication: Mineral supplementation
     Dosage: 10 ML, QD
     Route: 041
     Dates: start: 20200708, end: 20200710
  24. POTASSIUM CHLORIDE [Concomitant]
     Active Substance: POTASSIUM CHLORIDE
     Dosage: 20 ML, QD
     Route: 041
     Dates: start: 20200715, end: 20200715
  25. LORATADINE [Concomitant]
     Active Substance: LORATADINE
     Indication: Hypersensitivity
     Dosage: 10 MG, QD
     Route: 048
     Dates: start: 20200705, end: 20200713
  26. GANCICLOVIR [Concomitant]
     Active Substance: GANCICLOVIR
     Indication: Antiviral treatment
     Dosage: 0.25 G, BID
     Route: 041
     Dates: start: 20200703, end: 20200713
  27. GANCICLOVIR [Concomitant]
     Active Substance: GANCICLOVIR
     Indication: Pneumonia
     Dosage: 0.25 G, TID
     Route: 041
     Dates: start: 20200714, end: 20200715
  28. SOLU-MEDROL [Concomitant]
     Active Substance: METHYLPREDNISOLONE SODIUM SUCCINATE
     Indication: Pneumonia
     Dosage: 20 MG, BID
     Route: 041
     Dates: start: 20200703, end: 20200705
  29. SOLU-MEDROL [Concomitant]
     Active Substance: METHYLPREDNISOLONE SODIUM SUCCINATE
     Indication: Antiinflammatory therapy
     Dosage: 40 MG, QD
     Route: 041
     Dates: start: 20200709, end: 20200712
  30. SOLU-MEDROL [Concomitant]
     Active Substance: METHYLPREDNISOLONE SODIUM SUCCINATE
     Dosage: 60 MG, QD
     Route: 041
     Dates: start: 20200715, end: 20200715
  31. ERGOCALCIFEROL;PHYTOMENADIONE;RETINOL;VITAMIN E NOS [Concomitant]
     Indication: Vitamin supplementation
     Dosage: 1 DF (1 VIAL), QD
     Route: 041
     Dates: start: 20200711, end: 20200713
  32. CYTARABINE [Concomitant]
     Active Substance: CYTARABINE
     Indication: Chemotherapy
     Dosage: 3.5 G, QD (PUMP INJECTION)
     Dates: start: 20200704, end: 20200705
  33. CYTARABINE [Concomitant]
     Active Substance: CYTARABINE
     Dosage: 3.2 G, QD (PUMP INJECTION)
     Dates: start: 20200704, end: 20200705
  34. CYCLOSPORINE [Concomitant]
     Active Substance: CYCLOSPORINE
     Indication: Immunosuppression
     Dosage: 0.08 G
     Route: 041
     Dates: start: 20200708, end: 20200715
  35. DEXTROSE [Concomitant]
     Active Substance: DEXTROSE\DEXTROSE MONOHYDRATE
     Indication: Vehicle solution use
     Dosage: 500 ML, QD
     Route: 041
     Dates: start: 20200708, end: 20200710
  36. DEXTROSE [Concomitant]
     Active Substance: DEXTROSE\DEXTROSE MONOHYDRATE
     Dosage: 250 ML, QD
     Route: 042
     Dates: start: 20200709, end: 20200710
  37. DEXTROSE [Concomitant]
     Active Substance: DEXTROSE\DEXTROSE MONOHYDRATE
     Dosage: 10 ML, QD
     Route: 042
     Dates: start: 20200711, end: 20200715
  38. CALCIUM GLUCONATE [Concomitant]
     Active Substance: CALCIUM GLUCONATE
     Indication: Hypersensitivity
     Dosage: 10 ML, BID
     Route: 042
     Dates: start: 20200711, end: 20200715

REACTIONS (32)
  - Cardiac failure acute [Fatal]
  - Arrhythmia [Fatal]
  - Mitral valve incompetence [Fatal]
  - Supraventricular tachycardia [Fatal]
  - Heart rate increased [Fatal]
  - Blood pressure diastolic increased [Fatal]
  - Left ventricular dysfunction [Fatal]
  - Myelosuppression [Unknown]
  - Renal impairment [Unknown]
  - Musculoskeletal pain [Unknown]
  - Blood bilirubin increased [Unknown]
  - Pyrexia [Recovered/Resolved]
  - Bile duct stone [Unknown]
  - Cardiotoxicity [Not Recovered/Not Resolved]
  - Hepatic steatosis [Unknown]
  - Hypoaesthesia oral [Unknown]
  - Dizziness [Unknown]
  - Breath sounds abnormal [Unknown]
  - Rales [Unknown]
  - Chest discomfort [Not Recovered/Not Resolved]
  - Abdominal tenderness [Unknown]
  - Asthma [Not Recovered/Not Resolved]
  - Dysphoria [Unknown]
  - Respiratory rate increased [Unknown]
  - Pigmentation disorder [Unknown]
  - Loss of personal independence in daily activities [Unknown]
  - Accessory spleen [Unknown]
  - Abdominal pain lower [Recovering/Resolving]
  - Asthenia [Unknown]
  - Dyspnoea [Unknown]
  - Myalgia [Unknown]
  - Fungal infection [Unknown]

NARRATIVE: CASE EVENT DATE: 20200714
